FAERS Safety Report 7720652-8 (Version None)
Quarter: 2011Q3

REPORT INFORMATION
  Report Type: 
  Country: None (occurrence: None)
  Receive Date: 20110831
  Receipt Date: 20110822
  Transmission Date: 20111222
  Serious: Yes (Hospitalization)
  Sender: FDA-Public Use
  Company Number: NL-NOVOPROD-331787

PATIENT

DRUGS (4)
  1. VICTOZA [Suspect]
     Dosage: 0.6 MG, QD
     Route: 065
  2. NOVOLOG [Concomitant]
     Indication: TYPE 2 DIABETES MELLITUS
  3. VICTOZA [Suspect]
     Indication: TYPE 2 DIABETES MELLITUS
     Dosage: 0.6 MG, QD
     Route: 065
  4. VICTOZA [Suspect]
     Dosage: 1.2 MG, QD
     Route: 065

REACTIONS (3)
  - TRANSIENT ISCHAEMIC ATTACK [None]
  - VOMITING [None]
  - NAUSEA [None]
